FAERS Safety Report 13176245 (Version 2)
Quarter: 2017Q1

REPORT INFORMATION
  Report Type: Spontaneous
  Country: US (occurrence: US)
  Receive Date: 20170201
  Receipt Date: 20170228
  Transmission Date: 20170428
  Serious: Yes (Other)
  Sender: FDA-Public Use
  Company Number: US-AKORN PHARMACEUTICALS-2017AKN00101

PATIENT
  Sex: Female

DRUGS (7)
  1. TRETINOIN. [Concomitant]
     Active Substance: TRETINOIN
  2. MYORISAN [Suspect]
     Active Substance: ISOTRETINOIN
     Indication: ACNE
     Dosage: 20 MG, 1X/DAY
     Route: 048
     Dates: start: 20161109, end: 20161211
  3. METHYLPHENIDATE. [Concomitant]
     Active Substance: METHYLPHENIDATE
  4. BPO [Concomitant]
     Active Substance: BENZOYL PEROXIDE
  5. TRETINOIN. [Concomitant]
     Active Substance: TRETINOIN
  6. MYORISAN [Suspect]
     Active Substance: ISOTRETINOIN
     Dosage: 20 MG, 2X/DAY
     Route: 048
     Dates: start: 20161212, end: 20170116
  7. VYVANSE [Concomitant]
     Active Substance: LISDEXAMFETAMINE DIMESYLATE
     Dosage: 50 MG, UNK

REACTIONS (4)
  - Chapped lips [Unknown]
  - Suicidal ideation [Recovered/Resolved]
  - Stress [Unknown]
  - Lip dry [Unknown]
